FAERS Safety Report 4269407-X (Version None)
Quarter: 2004Q1

REPORT INFORMATION
  Report Type: 
  Country: None (occurrence: None)
  Receive Date: 20040112
  Receipt Date: 20040112
  Transmission Date: 20041129
  Serious: No
  Sender: FDA-Public Use
  Company Number: None

PATIENT
  Age: 50 Year

DRUGS (2)
  1. IBUPROFEN [Suspect]
     Indication: PAIN
     Dosage: OTC
  2. PREDNISONE [Suspect]
     Indication: RHEUMATOID ARTHRITIS
     Dosage: 10 MG QD

REACTIONS (2)
  - HAEMORRHAGE [None]
  - MEDICATION ERROR [None]
